FAERS Safety Report 24823785 (Version 2)
Quarter: 2025Q1

REPORT INFORMATION
  Report Type: Spontaneous
  Country: CH (occurrence: CH)
  Receive Date: 20250109
  Receipt Date: 20250306
  Transmission Date: 20250408
  Serious: Yes (Death, Life-Threatening, Hospitalization, Other)
  Sender: Unknown Manufacturer
  Company Number: CH-CDSU_IT-CH-MEN-111087

PATIENT

DRUGS (2)
  1. ORITAVANCIN [Suspect]
     Active Substance: ORITAVANCIN
     Indication: Endocarditis
     Route: 040
     Dates: start: 20241206, end: 20241206
  2. APIXABAN [Concomitant]
     Active Substance: APIXABAN
     Indication: Thrombosis
     Route: 048
     Dates: start: 202411

REACTIONS (2)
  - Cardiac failure [Fatal]
  - Product use in unapproved indication [Recovered/Resolved]

NARRATIVE: CASE EVENT DATE: 20241206
